FAERS Safety Report 9187201 (Version 2)
Quarter: 2013Q2

REPORT INFORMATION
  Report Type: Report from Study
  Country: MX (occurrence: MX)
  Receive Date: 20130325
  Receipt Date: 20130522
  Transmission Date: 20140414
  Serious: Yes (Hospitalization, Disabling, Other)
  Sender: FDA-Public Use
  Company Number: PHHY2013MX028381

PATIENT
  Age: 74 Year
  Sex: Female

DRUGS (3)
  1. EXFORGE [Suspect]
     Indication: HYPERTENSION
     Dosage: 1 DF (VALSARTAN 160MG AND AMLODIPINE 05MG) DAILY
     Route: 048
     Dates: start: 201101
  2. EXFORGE [Suspect]
     Dosage: 1 DF, (160 MG VALS/ 10 MG AMLO) DAILY
     Route: 048
     Dates: end: 201305
  3. BREDELIN [Concomitant]
     Dosage: 1 DF DAILY

REACTIONS (12)
  - Bacterial infection [Recovered/Resolved]
  - Fluid retention [Recovered/Resolved]
  - Arthralgia [Recovered/Resolved]
  - Inflammation [Recovered/Resolved]
  - Wound [Recovered/Resolved]
  - Infection [Recovered/Resolved]
  - Abasia [Recovered/Resolved with Sequelae]
  - Blood pressure decreased [Recovered/Resolved]
  - Feeling cold [Recovered/Resolved]
  - Blood cholesterol abnormal [Unknown]
  - Joint swelling [Not Recovered/Not Resolved]
  - Local swelling [Unknown]
